FAERS Safety Report 10070868 (Version 2)
Quarter: 2014Q2

REPORT INFORMATION
  Report Type: Spontaneous
  Country: DE (occurrence: DE)
  Receive Date: 20140410
  Receipt Date: 20140505
  Transmission Date: 20141212
  Serious: Yes (Hospitalization)
  Sender: FDA-Public Use
  Company Number: PHHY2014DE043400

PATIENT
  Age: 76 Year
  Sex: Male

DRUGS (4)
  1. EXELON [Suspect]
     Indication: DEMENTIA
     Dosage: 4.5 MG, DAILY
     Route: 048
     Dates: start: 20140408, end: 20140408
  2. TAVOR (FLUCONAZOLE) [Concomitant]
     Dosage: 1 MG, QD
  3. ASS [Concomitant]
     Dosage: 100 MG, QD
  4. PANTOZOL [Concomitant]
     Dosage: 40 MG, QD

REACTIONS (7)
  - Circulatory collapse [Recovered/Resolved]
  - Hyperhidrosis [Recovered/Resolved]
  - Peripheral vascular disorder [Recovered/Resolved]
  - Nausea [Recovered/Resolved]
  - Bradycardia [Recovered/Resolved]
  - Vomiting [Recovered/Resolved]
  - Drug intolerance [Recovered/Resolved]
